FAERS Safety Report 6669495-7 (Version None)
Quarter: 2010Q2

REPORT INFORMATION
  Report Type: 
  Country: None (occurrence: None)
  Receive Date: 20100406
  Receipt Date: 20100330
  Transmission Date: 20101027
  Serious: Yes (Hospitalization, Other)
  Sender: FDA-Public Use
  Company Number: PHHY2010DE19576

PATIENT
  Sex: Female
  Weight: 59 kg

DRUGS (5)
  1. ALISKIREN ALI+ [Suspect]
     Indication: HYPERTENSION
     Dosage: 300 MG/D
     Route: 048
     Dates: start: 20090309
  2. LOCOL [Suspect]
     Indication: HYPERCHOLESTEROLAEMIA
     Dosage: 40 MG/D
     Route: 048
     Dates: start: 20061010
  3. CALCIUM CHANNEL BLOCKERS [Concomitant]
     Dosage: UNK
     Dates: end: 20091010
  4. FLUTICASONE W/SALMETEROL [Concomitant]
     Indication: ASTHMA
     Dosage: UNK
     Dates: start: 20061010
  5. ATACAND HCT [Concomitant]
     Indication: HYPERTENSION
     Dosage: 16/25 MG
     Route: 048
     Dates: start: 20070101

REACTIONS (9)
  - ANGINA PECTORIS [None]
  - BLOOD CHOLESTEROL INCREASED [None]
  - CARDIAC FAILURE [None]
  - CHRONIC OBSTRUCTIVE PULMONARY DISEASE [None]
  - DYSPNOEA [None]
  - ELECTROCARDIOGRAM QT PROLONGED [None]
  - LEFT VENTRICULAR HYPERTROPHY [None]
  - LOW DENSITY LIPOPROTEIN INCREASED [None]
  - MYOCARDIAL INFARCTION [None]
